FAERS Safety Report 15897509 (Version 2)
Quarter: 2019Q1

REPORT INFORMATION
  Report Type: Spontaneous
  Country: PT (occurrence: PT)
  Receive Date: 20190131
  Receipt Date: 20190225
  Transmission Date: 20190417
  Serious: Yes (Life-Threatening, Hospitalization, Other)
  Sender: FDA-Public Use
  Company Number: PHHY2019PT018323

PATIENT
  Age: 62 Year
  Sex: Male

DRUGS (10)
  1. CARBAMAZEPINE. [Suspect]
     Active Substance: CARBAMAZEPINE
     Indication: EPILEPSY
  2. PHENYTOIN. [Suspect]
     Active Substance: PHENYTOIN
     Indication: ABNORMAL BEHAVIOUR
     Dosage: 100 MG, BID
     Route: 065
  3. PHENYTOIN. [Suspect]
     Active Substance: PHENYTOIN
     Indication: ALCOHOLISM
  4. TIAPRIDE HYDROCHLORIDE [Suspect]
     Active Substance: TIAPRIDE HYDROCHLORIDE
     Indication: ALCOHOLISM
  5. DIAZEPAM. [Suspect]
     Active Substance: DIAZEPAM
     Indication: ALCOHOLISM
  6. CARBAMAZEPINE. [Suspect]
     Active Substance: CARBAMAZEPINE
     Indication: ABNORMAL BEHAVIOUR
     Dosage: 400 MG, QD
     Route: 065
  7. CARBAMAZEPINE. [Suspect]
     Active Substance: CARBAMAZEPINE
     Indication: ALCOHOLISM
  8. TIAPRIDE HYDROCHLORIDE [Suspect]
     Active Substance: TIAPRIDE HYDROCHLORIDE
     Indication: ABNORMAL BEHAVIOUR
     Dosage: 100 MG, BID
     Route: 065
  9. DIAZEPAM. [Suspect]
     Active Substance: DIAZEPAM
     Indication: EPILEPSY
  10. DIAZEPAM. [Suspect]
     Active Substance: DIAZEPAM
     Indication: ABNORMAL BEHAVIOUR
     Dosage: 10 MG, TID
     Route: 042

REACTIONS (14)
  - Gait disturbance [Unknown]
  - Toxicity to various agents [Unknown]
  - Rhabdomyolysis [Recovered/Resolved]
  - Renal disorder [Recovered/Resolved]
  - Enzyme level increased [Unknown]
  - Leukocytosis [Unknown]
  - Musculoskeletal stiffness [Recovered/Resolved]
  - Neuroleptic malignant syndrome [Recovered/Resolved]
  - Altered state of consciousness [Recovering/Resolving]
  - Dystonia [Unknown]
  - Atrophy [Unknown]
  - Myoclonus [Recovering/Resolving]
  - Muscle rigidity [Unknown]
  - Dyskinesia [Unknown]
